FAERS Safety Report 5406974-4 (Version None)
Quarter: 2007Q3

REPORT INFORMATION
  Report Type: 
  Country: None (occurrence: None)
  Receive Date: 20070803
  Receipt Date: 20070803
  Transmission Date: 20080115
  Serious: Yes (Other)
  Sender: FDA-Public Use
  Company Number: None

PATIENT
  Age: 56 Year
  Sex: Male
  Weight: 99.7913 kg

DRUGS (1)
  1. TARKA 4/240 N.A. DOCTORS SAMPLES [Suspect]
     Indication: HYPERTENSION
     Dosage: 1 TABLET DAILY PO
     Route: 048
     Dates: start: 20061201, end: 20070110

REACTIONS (5)
  - ADVERSE DRUG REACTION [None]
  - CONJUNCTIVAL OEDEMA [None]
  - OEDEMA PERIPHERAL [None]
  - SWELLING FACE [None]
  - VISUAL ACUITY REDUCED [None]
